FAERS Safety Report 8427979-5 (Version None)
Quarter: 2012Q2

REPORT INFORMATION
  Report Type: 
  Country: None (occurrence: None)
  Receive Date: 20120611
  Receipt Date: 20120606
  Transmission Date: 20120825
  Serious: Yes (Other)
  Sender: FDA-Public Use
  Company Number: BR-PFIZER INC-2012136185

PATIENT
  Age: 72 Year
  Sex: Female

DRUGS (6)
  1. NAPRIX D [Concomitant]
     Indication: BLOOD PRESSURE INCREASED
     Dosage: TWO TABLETS DAILY
     Dates: start: 20100101
  2. METOPROLOL SUCCINATE [Concomitant]
     Indication: BLOOD PRESSURE INCREASED
     Dosage: ONE TABLET DAILY
     Dates: start: 20110101
  3. XALATAN [Suspect]
     Indication: GLAUCOMA
     Dosage: 3 UG (ONE DROP IN EACH EYE), 1X/DAY
     Route: 047
     Dates: start: 20101101
  4. SULFAMETHOXAZOLE AND TRIMETHOPRIM [Suspect]
     Indication: URINARY TRACT INFECTION
     Dosage: UNK
     Dates: start: 20120531, end: 20120604
  5. OMEPRAZOLE [Concomitant]
     Indication: GASTRIC DISORDER
     Dosage: 20 MG (ONE TABLET), DAILY
     Dates: start: 20120605
  6. EUTHYROX [Concomitant]
     Indication: HYPOTHYROIDISM
     Dosage: 50 MG, ONE TABLET ,1X/DAY
     Dates: start: 20020101

REACTIONS (5)
  - URINARY TRACT INFECTION [None]
  - DRUG INEFFECTIVE [None]
  - PRURITUS [None]
  - DRUG HYPERSENSITIVITY [None]
  - INTRAOCULAR PRESSURE INCREASED [None]
